FAERS Safety Report 12717424 (Version 1)
Quarter: 2016Q3

REPORT INFORMATION
  Report Type: Spontaneous
  Country: NO (occurrence: NO)
  Receive Date: 20160906
  Receipt Date: 20160906
  Transmission Date: 20161109
  Serious: Yes (Life-Threatening, Hospitalization, Other)
  Sender: FDA-Public Use
  Company Number: NO-GLAXOSMITHKLINE-NO2016GSK127558

PATIENT
  Age: 71 Year
  Sex: Female

DRUGS (6)
  1. PULMICORT TURBUHALER [Concomitant]
     Active Substance: BUDESONIDE
  2. DICLOFENAC SODIUM. [Suspect]
     Active Substance: DICLOFENAC SODIUM
     Indication: BACK PAIN
     Dosage: 50-100 MG IN EVENING
     Route: 048
     Dates: start: 20160106
  3. IMOVANE [Concomitant]
     Active Substance: ZOPICLONE
  4. NOZINAN [Concomitant]
     Active Substance: LEVOMEPROMAZINE
  5. METOPROLOL. [Concomitant]
     Active Substance: METOPROLOL
  6. BRICANYL [Concomitant]
     Active Substance: TERBUTALINE SULFATE

REACTIONS (1)
  - Duodenal ulcer haemorrhage [Recovering/Resolving]

NARRATIVE: CASE EVENT DATE: 20160106
